FAERS Safety Report 9727122 (Version 2)
Quarter: 2013Q4

REPORT INFORMATION
  Report Type: Spontaneous
  Country: JP (occurrence: JP)
  Receive Date: 20131203
  Receipt Date: 20131211
  Transmission Date: 20140711
  Serious: Yes (Other)
  Sender: FDA-Public Use
  Company Number: PHHY2013JP138653

PATIENT
  Sex: Female

DRUGS (1)
  1. LETROZOLE [Suspect]
     Route: 048

REACTIONS (1)
  - Non-alcoholic steatohepatitis [Unknown]
